FAERS Safety Report 15684683 (Version 2)
Quarter: 2018Q4

REPORT INFORMATION
  Report Type: Spontaneous
  Country: US (occurrence: US)
  Receive Date: 20181204
  Receipt Date: 20181212
  Transmission Date: 20190205
  Serious: Yes (Other)
  Sender: FDA-Public Use
  Company Number: US-PFIZER INC-2018490237

PATIENT
  Age: 44 Year
  Sex: Female
  Weight: 68.27 kg

DRUGS (2)
  1. SPIRONOLACTONE. [Suspect]
     Active Substance: SPIRONOLACTONE
     Indication: ACNE
     Dosage: 100 MG, 1X/DAY
  2. CITALOPRAM [Concomitant]
     Active Substance: CITALOPRAM HYDROBROMIDE
     Indication: ACNE
     Dosage: 20 MG, 1X/DAY

REACTIONS (3)
  - Kyphosis [Recovered/Resolved]
  - Product use in unapproved indication [Unknown]
  - Lipohypertrophy [Recovered/Resolved]
